FAERS Safety Report 8052699-9 (Version None)
Quarter: 2012Q1

REPORT INFORMATION
  Report Type: 
  Country: None (occurrence: None)
  Receive Date: 20120118
  Receipt Date: 20120118
  Transmission Date: 20120608
  Serious: Yes (Other)
  Sender: FDA-Public Use
  Company Number: None

PATIENT
  Age: 56 Year
  Sex: Female
  Weight: 68.946 kg

DRUGS (1)
  1. CLINDAMYCIN [Suspect]
     Indication: ABSCESS
     Dosage: 500 MG.
     Route: 048
     Dates: start: 20120110, end: 20120117

REACTIONS (1)
  - DYSPEPSIA [None]
